FAERS Safety Report 6229972-X (Version None)
Quarter: 2009Q2

REPORT INFORMATION
  Report Type: 
  Country: None (occurrence: None)
  Receive Date: 20090615
  Receipt Date: 20090609
  Transmission Date: 20091009
  Serious: Yes (Hospitalization, Disabling)
  Sender: FDA-Public Use
  Company Number: AU-BRISTOL-MYERS SQUIBB COMPANY-14661524

PATIENT
  Age: 50 Year
  Sex: Female

DRUGS (2)
  1. AVAPRO [Suspect]
     Indication: ESSENTIAL HYPERTENSION
     Route: 048
     Dates: start: 20071208, end: 20071210
  2. LEVOTHYROXINE SODIUM [Concomitant]
     Dosage: FORMULATION: TABLET
     Route: 048

REACTIONS (9)
  - ANGIOEDEMA [None]
  - DYSGEUSIA [None]
  - FATIGUE [None]
  - FOOD INTOLERANCE [None]
  - GENITAL SWELLING [None]
  - OEDEMA PERIPHERAL [None]
  - PRURITUS [None]
  - RASH [None]
  - SCLERITIS [None]
